FAERS Safety Report 21920725 (Version 1)
Quarter: 2023Q1

REPORT INFORMATION
  Report Type: Spontaneous
  Country: CN (occurrence: CN)
  Receive Date: 20230127
  Receipt Date: 20230127
  Transmission Date: 20230418
  Serious: Yes (Hospitalization)
  Sender: FDA-Public Use
  Company Number: CN-NAARI PTE LIMITED-2023NP000002

PATIENT
  Age: 28 Year
  Sex: Female
  Weight: 50 kg

DRUGS (1)
  1. DROSPIRENONE AND ETHINYL ESTRADIOL [Suspect]
     Active Substance: DROSPIRENONE\ETHINYL ESTRADIOL
     Indication: Abnormal uterine bleeding
     Dosage: DROSPIRENONE 3 MG/DAY AND ORAL ETHINYLESTRADIOL 0.03MG
     Route: 048

REACTIONS (4)
  - Intestinal ischaemia [Recovered/Resolved]
  - Splenic vein thrombosis [Recovered/Resolved]
  - Portosplenomesenteric venous thrombosis [Recovered/Resolved]
  - Off label use [Unknown]
